FAERS Safety Report 22137057 (Version 2)
Quarter: 2023Q2

REPORT INFORMATION
  Report Type: Spontaneous
  Country: US (occurrence: US)
  Receive Date: 20230324
  Receipt Date: 20230413
  Transmission Date: 20230722
  Serious: Yes (Other)
  Sender: FDA-Public Use
  Company Number: US-MALLINCKRODT-MNK202300526

PATIENT
  Age: 14 Year
  Sex: Female
  Weight: 36 kg

DRUGS (4)
  1. UVADEX [Suspect]
     Active Substance: METHOXSALEN
     Indication: Lung transplant
     Dosage: UNK (OTHER)
     Route: 050
     Dates: start: 20210721
  2. UVADEX [Suspect]
     Active Substance: METHOXSALEN
     Indication: Graft versus host disease
  3. HEPARIN [Concomitant]
     Active Substance: HEPARIN SODIUM
     Dosage: 10,000 UNITS IN 500 MILLILITRE NACI 10:1
  4. TYLENOL [Concomitant]
     Active Substance: ACETAMINOPHEN
     Indication: Product used for unknown indication
     Dosage: 1 HOUR BEFORE TREATMENT

REACTIONS (3)
  - Immune thrombocytopenia [Recovering/Resolving]
  - Condition aggravated [Recovering/Resolving]
  - Product use in unapproved indication [Unknown]

NARRATIVE: CASE EVENT DATE: 20210721
